FAERS Safety Report 15134006 (Version 1)
Quarter: 2018Q3

REPORT INFORMATION
  Report Type: Report from Study
  Country: JP (occurrence: JP)
  Receive Date: 20180712
  Receipt Date: 20180712
  Transmission Date: 20181010
  Serious: Yes (Death, Other)
  Sender: FDA-Public Use
  Company Number: PHJP2017JP031834

PATIENT
  Age: 68 Year
  Sex: Female

DRUGS (5)
  1. DECADRON [Concomitant]
     Active Substance: DEXAMETHASONE
     Indication: NON-SMALL CELL LUNG CANCER STAGE IV
     Dosage: 0.5 MG, UNK
     Route: 048
  2. ZYKADIA [Suspect]
     Active Substance: CERITINIB
     Indication: NON-SMALL CELL LUNG CANCER STAGE IV
     Dosage: 750 MG, QD
     Route: 048
     Dates: start: 20170913, end: 20171011
  3. URSODEOXYCHOLIC ACID [Concomitant]
     Active Substance: URSODIOL
     Indication: PRODUCT USED FOR UNKNOWN INDICATION
     Dosage: 150 MG, QD
     Route: 048
     Dates: end: 20171013
  4. URSODEOXYCHOLIC ACID [Concomitant]
     Active Substance: URSODIOL
     Dosage: 300 MG, QD
     Route: 048
     Dates: start: 20171013
  5. ZYKADIA [Suspect]
     Active Substance: CERITINIB
     Dosage: 700 MG, QD
     Route: 048
     Dates: start: 20171011, end: 20171023

REACTIONS (9)
  - Drug-induced liver injury [Fatal]
  - Metastases to liver [Not Recovered/Not Resolved]
  - Non-small cell lung cancer stage IV [Not Recovered/Not Resolved]
  - Malignant neoplasm progression [Not Recovered/Not Resolved]
  - Vomiting [Unknown]
  - Alanine aminotransferase increased [Fatal]
  - Decreased appetite [Not Recovered/Not Resolved]
  - Aspartate aminotransferase increased [Fatal]
  - Diarrhoea [Not Recovered/Not Resolved]

NARRATIVE: CASE EVENT DATE: 20170913
